FAERS Safety Report 5804530-7 (Version None)
Quarter: 2008Q3

REPORT INFORMATION
  Report Type: 
  Country: None (occurrence: None)
  Receive Date: 20080707
  Receipt Date: 20080626
  Transmission Date: 20090109
  Serious: Yes (Life-Threatening, Hospitalization)
  Sender: FDA-Public Use
  Company Number: GXKR2008GB05957

PATIENT
  Age: 55 Year
  Sex: Male
  Weight: 92 kg

DRUGS (8)
  1. WARFARIN SODIUM [Suspect]
  2. FRAGMIN /NET/ (DALTEPARIN SODIUM, HEPARIN-FRACTION, SODIUM SALT) [Suspect]
     Indication: PULMONARY EMBOLISM
     Dosage: 1800 IU, SUBCUTANEOUS
     Route: 058
     Dates: start: 20080511, end: 20080519
  3. HEPARIN [Suspect]
     Indication: PULMONARY EMBOLISM
     Dosage: 5000 IU, INTRAVENOUS
     Route: 042
     Dates: start: 20080529, end: 20080529
  4. AMLODIPINE [Concomitant]
  5. LEVOTHYROXINE SODIUM [Concomitant]
  6. LIPITOR /NET/ (ATORVASTATIN CALCIUM) [Concomitant]
  7. LISINOPRIL [Concomitant]
  8. XANAX [Concomitant]

REACTIONS (5)
  - CHEST DISCOMFORT [None]
  - CHILLS [None]
  - DYSPNOEA [None]
  - MORBID THOUGHTS [None]
  - PAIN IN EXTREMITY [None]
